FAERS Safety Report 24695943 (Version 3)
Quarter: 2025Q4

REPORT INFORMATION
  Report Type: Report from Study
  Country: EG (occurrence: EG)
  Receive Date: 20241204
  Receipt Date: 20251215
  Transmission Date: 20260118
  Serious: Yes (Hospitalization)
  Sender: BIOGEN
  Company Number: EG-BIOGEN-2024BI01292507

PATIENT
  Age: 22 Year
  Sex: Female
  Weight: 65 kg

DRUGS (6)
  1. TYSABRI [Suspect]
     Active Substance: NATALIZUMAB
     Indication: Multiple sclerosis
     Dates: start: 20231014
  2. TYSABRI [Suspect]
     Active Substance: NATALIZUMAB
     Dates: start: 202507
  3. VITAMIN D [Concomitant]
     Active Substance: VITAMIN D NOS
     Indication: Supplementation therapy
  4. GAPTIN [Concomitant]
     Indication: Analgesic therapy
  5. PANADOL [Concomitant]
     Active Substance: ACETAMINOPHEN
     Indication: Headache
  6. BISOPROLOL FUMARATE [Concomitant]
     Active Substance: BISOPROLOL FUMARATE
     Indication: Hypertension

REACTIONS (1)
  - Multiple sclerosis relapse [Not Recovered/Not Resolved]

NARRATIVE: CASE EVENT DATE: 20241005
